FAERS Safety Report 8408768-4 (Version None)
Quarter: 2012Q2

REPORT INFORMATION
  Report Type: 
  Country: None (occurrence: None)
  Receive Date: 20120604
  Receipt Date: 20120522
  Transmission Date: 20120825
  Serious: Yes (Other)
  Sender: FDA-Public Use
  Company Number: GB-ELI_LILLY_AND_COMPANY-GB201205008760

PATIENT
  Sex: Male

DRUGS (2)
  1. ZYPREXA [Suspect]
     Dosage: 15 MG, QD
  2. ZYPREXA [Suspect]
     Dosage: 10 MG, QD
     Dates: start: 20120308

REACTIONS (3)
  - LOSS OF CONSCIOUSNESS [None]
  - HYPOTENSION [None]
  - DIZZINESS [None]
